FAERS Safety Report 16724460 (Version 3)
Quarter: 2019Q4

REPORT INFORMATION
  Report Type: Spontaneous
  Country: US (occurrence: US)
  Receive Date: 20190821
  Receipt Date: 20191209
  Transmission Date: 20200122
  Serious: Yes (Life-Threatening, Hospitalization, Other)
  Sender: FDA-Public Use
  Company Number: US-PFIZER INC-2019357147

PATIENT
  Age: 70 Year
  Sex: Female
  Weight: 52.16 kg

DRUGS (6)
  1. IBRANCE [Suspect]
     Active Substance: PALBOCICLIB
     Indication: NEOPLASM
     Dosage: 100 MG, CYCLIC (TOOK IT 7 DAYS )
     Dates: start: 20190614, end: 20190620
  2. IBRANCE [Suspect]
     Active Substance: PALBOCICLIB
     Indication: BREAST CANCER METASTATIC
     Dosage: UNK
     Dates: end: 20190606
  3. IBRANCE [Suspect]
     Active Substance: PALBOCICLIB
     Dosage: 100 MG, CYCLIC
     Dates: start: 20190726, end: 20190815
  4. LOMOTIL [LOPERAMIDE HYDROCHLORIDE] [Concomitant]
     Dosage: UNK (2.5MG-0.025)
     Dates: start: 20191003
  5. POTASSIUM CHLORIDE. [Concomitant]
     Active Substance: POTASSIUM CHLORIDE
     Dosage: 20 MEQ, UNK
     Dates: start: 20191004
  6. IBRANCE [Suspect]
     Active Substance: PALBOCICLIB
     Dosage: 100 MG, CYCLIC (1 A DAY ON 1-21 DAYS OFF 7 DAYS)

REACTIONS (22)
  - Small intestinal obstruction [Recovered/Resolved]
  - Back pain [Unknown]
  - Blood count abnormal [Not Recovered/Not Resolved]
  - Rhinorrhoea [Unknown]
  - Nasopharyngitis [Unknown]
  - Dysphonia [Unknown]
  - Hypotension [Unknown]
  - Nausea [Unknown]
  - Haemorrhage [Unknown]
  - Contusion [Unknown]
  - Abscess intestinal [Recovered/Resolved]
  - Asthenia [Unknown]
  - Head discomfort [Unknown]
  - Diarrhoea [Unknown]
  - Decreased appetite [Unknown]
  - Pain [Unknown]
  - Neoplasm progression [Not Recovered/Not Resolved]
  - Dizziness [Unknown]
  - Dyspnoea [Unknown]
  - Post procedural fistula [Recovered/Resolved]
  - Ear discomfort [Unknown]
  - Alopecia [Unknown]

NARRATIVE: CASE EVENT DATE: 20190123
